FAERS Safety Report 21977741 (Version 3)
Quarter: 2025Q3

REPORT INFORMATION
  Report Type: Report from Study
  Country: ZA (occurrence: ZA)
  Receive Date: 20230210
  Receipt Date: 20250924
  Transmission Date: 20251021
  Serious: Yes (Other)
  Sender: ROCHE
  Company Number: ZA-ROCHE-3277345

PATIENT
  Sex: Female

DRUGS (2)
  1. OCREVUS [Suspect]
     Active Substance: OCRELIZUMAB
     Indication: Multiple sclerosis
     Dosage: THERAFTER EVERY SIX MONTHS
     Route: 042
     Dates: start: 20220727
  2. OCREVUS [Suspect]
     Active Substance: OCRELIZUMAB
     Dosage: THEREAFTER 600MG EVERY AFTER 6 MONTHS
     Route: 065
     Dates: start: 20220727

REACTIONS (10)
  - Demyelination [Unknown]
  - Multiple sclerosis [Unknown]
  - Gliosis [Unknown]
  - Magnetic resonance imaging spinal abnormal [Unknown]
  - Vertebral foraminal stenosis [Unknown]
  - Vertebral osteophyte [Unknown]
  - Intervertebral disc protrusion [Unknown]
  - Cervical spinal stenosis [Unknown]
  - Thecal sac compression [Unknown]
  - Spinal stenosis [Unknown]
